FAERS Safety Report 9206231 (Version 1)
Quarter: 2013Q1

REPORT INFORMATION
  Report Type: Spontaneous
  Country: US (occurrence: None)
  Receive Date: 20120716
  Receipt Date: 20120716
  Transmission Date: 20140127
  Serious: Yes (Hospitalization)
  Sender: FDA-Public Use
  Company Number: 2012SP017885

PATIENT
  Age: 71 Year
  Sex: Female

DRUGS (4)
  1. DULERA [Suspect]
     Indication: ASTHMA
     Dosage: ; BID ; INV
     Route: 055
     Dates: end: 201203
  2. VENTOLIN HFA [Concomitant]
  3. SINGULAR [Concomitant]
  4. ALLEGRA-D [Concomitant]

REACTIONS (5)
  - Bacterial infection [None]
  - Skin infection [None]
  - Lymphadenopathy [None]
  - Pharyngitis [None]
  - Infective glossitis [None]
